FAERS Safety Report 15160217 (Version 6)
Quarter: 2019Q3

REPORT INFORMATION
  Report Type: Report from Study
  Country: US (occurrence: US)
  Receive Date: 20180718
  Receipt Date: 20190923
  Transmission Date: 20191004
  Serious: Yes (Hospitalization, Other)
  Sender: FDA-Public Use
  Company Number: PHEH2018US029392

PATIENT
  Age: 51 Year
  Sex: Female

DRUGS (2)
  1. GILENYA [Suspect]
     Active Substance: FINGOLIMOD HYDROCHLORIDE
     Indication: MULTIPLE SCLEROSIS
     Dosage: 0.5 MG, QD
     Route: 048
     Dates: start: 20180525
  2. GILENYA [Suspect]
     Active Substance: FINGOLIMOD HYDROCHLORIDE
     Indication: RELAPSING-REMITTING MULTIPLE SCLEROSIS

REACTIONS (11)
  - Fall [Recovering/Resolving]
  - Malaise [Recovered/Resolved]
  - Pain [Recovering/Resolving]
  - Herpes zoster [Recovered/Resolved]
  - Muscle spasms [Recovering/Resolving]
  - Muscle strain [Recovering/Resolving]
  - Road traffic accident [Recovering/Resolving]
  - Blood pressure increased [Unknown]
  - Rib fracture [Recovering/Resolving]
  - Rash [Unknown]
  - Vomiting [Recovered/Resolved]

NARRATIVE: CASE EVENT DATE: 20180625
